FAERS Safety Report 9492342 (Version 2)
Quarter: 2013Q3

REPORT INFORMATION
  Report Type: Spontaneous
  Country: US (occurrence: US)
  Receive Date: 20130830
  Receipt Date: 20130830
  Transmission Date: 20140515
  Serious: Yes (Other)
  Sender: FDA-Public Use
  Company Number: PHHY2013US044906

PATIENT
  Age: 51 Year
  Sex: Female

DRUGS (1)
  1. LEVODOPA+CARBIDOPA [Suspect]
     Indication: PARKINSON^S DISEASE
     Dosage: 1 DF, TID

REACTIONS (2)
  - Glare [Recovered/Resolved]
  - Mydriasis [Recovered/Resolved]
